FAERS Safety Report 4674692-6 (Version None)
Quarter: 2005Q2

REPORT INFORMATION
  Report Type: 
  Country: None (occurrence: None)
  Receive Date: 20050526
  Receipt Date: 20050519
  Transmission Date: 20051028
  Serious: Yes (Hospitalization, Other)
  Sender: FDA-Public Use
  Company Number: US-BRISTOL-MYERS SQUIBB COMPANY-12975785

PATIENT
  Age: 65 Year
  Sex: Male
  Weight: 107 kg

DRUGS (14)
  1. CETUXIMAB [Suspect]
     Indication: COLON CANCER
     Dosage: 1ST CETUXIMAB INFUSION ADMINISTERED ON 20-APR-2005.
     Route: 042
     Dates: start: 20050516, end: 20050516
  2. CAPECITABINE [Suspect]
     Indication: COLON CANCER
     Dosage: 1ST CAPECITABINE DOSE (500 MG/150 MG) ADMINISTERED ON 26-APR-2005 (975 MG PO BID X 14 DAYS).
     Route: 048
     Dates: start: 20050505, end: 20050505
  3. IRINOTECAN [Suspect]
     Indication: COLON CANCER
     Dosage: 1ST IRINOTECAN INFUSION (110 MG/40 MG) ADMINISTERED ON 20-APR-2005. LOT 39MPH, EXPIATION JUN-2007.
     Route: 042
     Dates: start: 20050425, end: 20050425
  4. ALOXI [Concomitant]
     Dates: start: 20050425, end: 20050425
  5. DEXAMETHASONE [Concomitant]
     Dates: start: 20050425, end: 20050425
  6. LEVOXYL [Concomitant]
  7. NEXIUM [Concomitant]
  8. NIFEDIPINE [Concomitant]
  9. CELEBREX [Concomitant]
  10. LIPITOR [Concomitant]
  11. FUROSEMIDE [Concomitant]
  12. POTASSIUM CHLORIDE [Concomitant]
  13. ZETIA [Concomitant]
  14. ALLEGRA [Concomitant]

REACTIONS (2)
  - ACUTE MYOCARDIAL INFARCTION [None]
  - CARDIAC ARREST [None]
